FAERS Safety Report 9308234 (Version 3)
Quarter: 2013Q2

REPORT INFORMATION
  Report Type: Spontaneous
  Country: ES (occurrence: ES)
  Receive Date: 20130524
  Receipt Date: 20130610
  Transmission Date: 20140414
  Serious: Yes (Death, Hospitalization)
  Sender: FDA-Public Use
  Company Number: ES-PFIZER INC-2013158469

PATIENT
  Age: 36 Year
  Sex: Female

DRUGS (12)
  1. FLUCONAZOLE [Suspect]
     Indication: ORAL CANDIDIASIS
     Dosage: 100 MG, DAILY
     Route: 065
  2. VORICONAZOLE [Suspect]
     Indication: BRONCHOPULMONARY ASPERGILLOSIS
     Dosage: 6 MG/KG, Q 12 HR, FIRST 24 HR
     Route: 042
  3. VORICONAZOLE [Suspect]
     Dosage: 4 MG/KG, Q 12 HR
     Route: 042
  4. VORICONAZOLE [Suspect]
     Indication: ASPERGILLUS INFECTION
     Dosage: 200 MG, Q12H
     Route: 048
     Dates: start: 2003, end: 200403
  5. VORICONAZOLE [Suspect]
     Dosage: UNK
     Route: 048
     Dates: start: 200405
  6. VORICONAZOLE [Suspect]
     Dosage: 200 MG, Q12H
     Route: 048
     Dates: start: 200409
  7. AMPHOTERICIN B [Suspect]
     Indication: BRONCHOPULMONARY ASPERGILLOSIS
     Dosage: 5 MG/KG, 1X/DAY
     Route: 065
  8. AMPHOTERICIN B [Suspect]
     Dosage: 25 MG, 3X/WEEK
     Dates: start: 200403
  9. AMPHOTERICIN B [Suspect]
     Dosage: 25 MG, ONCE A WEEKLY
  10. CASPOFUNGIN [Suspect]
     Indication: BRONCHOPULMONARY ASPERGILLOSIS
     Dosage: 70 MG, 1X/DAY AS LOADING DOSE
     Route: 065
     Dates: start: 200403
  11. CASPOFUNGIN [Suspect]
     Dosage: 50 MG, 1X/DAY
     Route: 065
     Dates: start: 200405
  12. ITRACONAZOLE [Concomitant]
     Indication: ORAL CANDIDIASIS
     Dosage: 100 MG, 1X/DAY
     Route: 048
     Dates: start: 20030306

REACTIONS (2)
  - Bronchopulmonary aspergillosis [Fatal]
  - Drug resistance [Not Recovered/Not Resolved]
